FAERS Safety Report 8019712-6 (Version None)
Quarter: 2012Q1

REPORT INFORMATION
  Report Type: 
  Country: None (occurrence: None)
  Receive Date: 20120103
  Receipt Date: 20110131
  Transmission Date: 20120608
  Serious: Yes (Other)
  Sender: FDA-Public Use
  Company Number: GB-GLAXOSMITHKLINE-B0697386A

PATIENT
  Sex: Female

DRUGS (2)
  1. AVODART [Suspect]
     Indication: ALOPECIA
     Route: 067
     Dates: start: 20060101
  2. SUMATRIPTAN [Concomitant]
     Indication: MIGRAINE
     Dates: start: 20101101

REACTIONS (3)
  - OFF LABEL USE [None]
  - ABORTION SPONTANEOUS [None]
  - EXPOSURE VIA SEMEN [None]
